FAERS Safety Report 15109642 (Version 4)
Quarter: 2020Q2

REPORT INFORMATION
  Report Type: Spontaneous
  Country: TW (occurrence: TW)
  Receive Date: 20180705
  Receipt Date: 20200507
  Transmission Date: 20200713
  Serious: Yes (Other)
  Sender: FDA-Public Use
  Company Number: TW-CELGENEUS-TWN-20180700524

PATIENT
  Age: 84 Year
  Sex: Male

DRUGS (42)
  1. ANIDULAFUNGIN [Concomitant]
     Active Substance: ANIDULAFUNGIN
     Indication: FUNGAL INFECTION
     Route: 041
     Dates: start: 20180619, end: 20180619
  2. MORPHINE HCL [Concomitant]
     Active Substance: MORPHINE HYDROCHLORIDE
     Indication: PAIN
     Route: 041
     Dates: start: 20180613, end: 20180613
  3. SENNOSIDE A+B [Concomitant]
     Active Substance: SENNOSIDES A AND B
     Route: 048
     Dates: start: 20180524, end: 20180524
  4. TEICOPLANIN [Concomitant]
     Active Substance: TEICOPLANIN
     Dosage: 800 MILLIGRAM
     Route: 041
     Dates: start: 20180614, end: 20180622
  5. BISACODYL. [Concomitant]
     Active Substance: BISACODYL
     Indication: CONSTIPATION
     Route: 054
     Dates: start: 20180617, end: 20180617
  6. FENTANYL CITRATE. [Concomitant]
     Active Substance: FENTANYL CITRATE
     Indication: PAIN
     Dosage: 12.5 MICROGRAM
     Route: 062
     Dates: start: 20180619, end: 20180620
  7. INSULIN REGULAR [Concomitant]
     Active Substance: INSULIN NOS
     Route: 058
     Dates: start: 20180619, end: 20180619
  8. MORPHINE HCL [Concomitant]
     Active Substance: MORPHINE HYDROCHLORIDE
     Route: 058
     Dates: start: 20180615, end: 20180615
  9. MORPHINE HCL [Concomitant]
     Active Substance: MORPHINE HYDROCHLORIDE
     Dosage: 8 MILLIGRAM
     Route: 041
     Dates: start: 20180618, end: 20180619
  10. TAMSULOSIN HCL [Concomitant]
     Active Substance: TAMSULOSIN HYDROCHLORIDE
     Route: 048
     Dates: start: 20180503, end: 20180513
  11. ACETAMINOPHEN. [Concomitant]
     Active Substance: ACETAMINOPHEN
     Route: 048
     Dates: start: 20180608, end: 20180618
  12. NOREPINEPHRINE BITARTRATE. [Concomitant]
     Active Substance: NOREPINEPHRINE BITARTRATE
     Indication: HYPOTENSION
     Dosage: 16 MILLIGRAM
     Route: 041
     Dates: start: 20180619
  13. MORPHINE HCL [Concomitant]
     Active Substance: MORPHINE HYDROCHLORIDE
     Route: 058
     Dates: start: 20180613, end: 20180615
  14. MORPHINE HCL [Concomitant]
     Active Substance: MORPHINE HYDROCHLORIDE
     Dosage: 24 MILLIGRAM
     Route: 058
     Dates: start: 20180619, end: 20180620
  15. DIPHENHYDRAMINE HCL [Concomitant]
     Active Substance: DIPHENHYDRAMINE HYDROCHLORIDE
     Route: 041
     Dates: start: 20180617
  16. TAMSULOSIN HCL [Concomitant]
     Active Substance: TAMSULOSIN HYDROCHLORIDE
     Indication: BENIGN PROSTATIC HYPERPLASIA
     Dosage: .2 MILLIGRAM
     Route: 060
     Dates: start: 20180514, end: 20180530
  17. SENNOSIDE A+B [Concomitant]
     Active Substance: SENNOSIDES A AND B
     Indication: CONSTIPATION
     Dosage: 25 MILLIGRAM
     Route: 048
     Dates: start: 20180519, end: 20180520
  18. ACETAMINOPHEN. [Concomitant]
     Active Substance: ACETAMINOPHEN
     Route: 048
     Dates: start: 20180617, end: 20180617
  19. MEROPENEM TRIHYDRATE [Concomitant]
     Active Substance: MEROPENEM
     Indication: FEBRILE NEUTROPENIA
     Dosage: 3000 MILLIGRAM
     Route: 041
     Dates: start: 20180616, end: 20180622
  20. TETRACYCLINE HCL [Concomitant]
     Active Substance: TETRACYCLINE HYDROCHLORIDE
     Indication: ANORECTAL DISORDER
     Route: 061
     Dates: start: 20180616
  21. VENETOCLAX (VERUM) [Concomitant]
     Indication: ACUTE MYELOID LEUKAEMIA
     Dosage: 100 MILLIGRAM
     Route: 048
     Dates: start: 20180515, end: 20180515
  22. DIPHENHYDRAMINE HCL [Concomitant]
     Active Substance: DIPHENHYDRAMINE HYDROCHLORIDE
     Indication: PROPHYLAXIS
     Route: 041
     Dates: start: 20180302, end: 20180612
  23. TAMSULOSIN HCL [Concomitant]
     Active Substance: TAMSULOSIN HYDROCHLORIDE
     Route: 060
     Dates: start: 20180612
  24. ACETAMINOPHEN. [Concomitant]
     Active Substance: ACETAMINOPHEN
     Indication: FEBRILE NEUTROPENIA
     Dosage: 2000 MILLIGRAM
     Route: 048
     Dates: start: 20180606, end: 20180608
  25. FOLIC ACID. [Concomitant]
     Active Substance: FOLIC ACID
     Indication: ANAEMIA
  26. AZACITIDINE INJECTABLE [Suspect]
     Active Substance: AZACITIDINE
     Indication: ACUTE MYELOID LEUKAEMIA
     Dosage: 75 MILLIGRAM/SQ. METER
     Route: 058
     Dates: start: 20180515, end: 20180521
  27. FEBUXOSTAT. [Concomitant]
     Active Substance: FEBUXOSTAT
     Indication: HYPERURICAEMIA
     Dosage: 40 MILLIGRAM
     Route: 048
     Dates: start: 20180226, end: 20180513
  28. SENNOSIDE A+B [Concomitant]
     Active Substance: SENNOSIDES A AND B
     Route: 048
     Dates: start: 20180520, end: 20180520
  29. FILGRASTIM [Concomitant]
     Active Substance: FILGRASTIM
     Indication: FEBRILE NEUTROPENIA
     Dosage: 300 MICROGRAM
     Route: 058
     Dates: start: 20180612, end: 20180612
  30. VENETOCLAX (VERUM) [Concomitant]
     Dosage: 200 MILLIGRAM
     Route: 048
     Dates: start: 20180516, end: 20180516
  31. SENNOSIDE A+B [Concomitant]
     Active Substance: SENNOSIDES A AND B
     Dosage: 37.5 MILLIGRAM
     Route: 048
     Dates: start: 20180529, end: 20180606
  32. SENNOSIDE A+B [Concomitant]
     Active Substance: SENNOSIDES A AND B
     Route: 048
     Dates: start: 20180615
  33. ACETAMINOPHEN. [Concomitant]
     Active Substance: ACETAMINOPHEN
     Dosage: 2000 MILLIGRAM
     Route: 048
     Dates: start: 20180618
  34. TEICOPLANIN [Concomitant]
     Active Substance: TEICOPLANIN
     Indication: FEBRILE NEUTROPENIA
     Dosage: 1600 MILLIGRAM
     Route: 041
     Dates: start: 20180612, end: 20180613
  35. INSULIN REGULAR [Concomitant]
     Active Substance: INSULIN NOS
     Indication: DIABETES MELLITUS
     Dosage: 10 IU (INTERNATIONAL UNIT)
     Route: 041
     Dates: start: 20180618
  36. COMBEVIT C [Concomitant]
     Indication: NUTRITIONAL SUPPLEMENTATION
     Dosage: 1 CAPSULE
     Route: 048
     Dates: start: 20180614
  37. MORPHINE HCL [Concomitant]
     Active Substance: MORPHINE HYDROCHLORIDE
     Route: 058
     Dates: start: 20180616, end: 20180619
  38. VENETOCLAX (VERUM) [Concomitant]
     Dosage: 400 MILLIGRAM
     Route: 048
     Dates: start: 20180517, end: 20180611
  39. FEBUXOSTAT. [Concomitant]
     Active Substance: FEBUXOSTAT
     Indication: PROPHYLAXIS
     Dosage: 40 MILLIGRAM
     Route: 048
     Dates: start: 20180514, end: 20180521
  40. DIPHENHYDRAMINE HCL [Concomitant]
     Active Substance: DIPHENHYDRAMINE HYDROCHLORIDE
     Indication: CHILLS
     Route: 041
     Dates: start: 20180608, end: 20180608
  41. COLISTIN METHANESULFONATE [Concomitant]
     Active Substance: COLISTIN SULFATE
     Indication: FEBRILE NEUTROPENIA
     Dosage: 233.8 MILLIGRAM
     Route: 041
     Dates: start: 20180619, end: 20180622
  42. FOLIC ACID. [Concomitant]
     Active Substance: FOLIC ACID
     Indication: NUTRITIONAL SUPPLEMENTATION
     Dosage: 5 MILLIGRAM
     Route: 048
     Dates: start: 20180614

REACTIONS (1)
  - Hepatitis acute [Recovered/Resolved]

NARRATIVE: CASE EVENT DATE: 20180622
